FAERS Safety Report 23618275 (Version 1)
Quarter: 2024Q1

REPORT INFORMATION
  Report Type: Spontaneous
  Country: ES (occurrence: ES)
  Receive Date: 20240311
  Receipt Date: 20240311
  Transmission Date: 20240410
  Serious: Yes (Life-Threatening, Hospitalization)
  Sender: FDA-Public Use
  Company Number: None

PATIENT
  Age: 58 Year
  Sex: Female

DRUGS (3)
  1. QUETIAPINE [Suspect]
     Active Substance: QUETIAPINE
     Indication: Suicide attempt
     Dosage: TIME INTERVAL: TOTAL
     Route: 048
     Dates: start: 20240123, end: 20240123
  2. DIAZEPAM [Suspect]
     Active Substance: DIAZEPAM
     Indication: Suicide attempt
     Dosage: TIME INTERVAL: TOTAL: (730A)
     Route: 048
     Dates: start: 20240123, end: 20240123
  3. VALPROIC ACID [Suspect]
     Active Substance: VALPROIC ACID
     Indication: Suicide attempt
     Dosage: TIME INTERVAL: TOTAL: EXTENDED RELEASE TABLETS, 100 TABLETS
     Route: 048
     Dates: start: 20240123, end: 20240123

REACTIONS (1)
  - Coma [Recovered/Resolved]

NARRATIVE: CASE EVENT DATE: 20240123
